FAERS Safety Report 7000821-5 (Version None)
Quarter: 2010Q3

REPORT INFORMATION
  Report Type: 
  Country: None (occurrence: None)
  Receive Date: 20100920
  Receipt Date: 20091015
  Transmission Date: 20110219
  Serious: No
  Sender: FDA-Public Use
  Company Number: US-ASTRAZENECA-2009SE20474

PATIENT
  Sex: Female
  Weight: 104.3 kg

DRUGS (6)
  1. SEROQUEL [Suspect]
     Route: 048
     Dates: start: 20050101
  2. SEROQUEL [Suspect]
     Route: 048
     Dates: start: 20080101
  3. SEROQUEL [Suspect]
     Route: 048
     Dates: start: 20090401
  4. KLONOPIN [Concomitant]
  5. DEPAKOTE [Concomitant]
  6. BLOOD PRESSURE MED OF UNKNOWN NAME [Concomitant]

REACTIONS (9)
  - DISORIENTATION [None]
  - FALL [None]
  - HEART RATE INCREASED [None]
  - ILL-DEFINED DISORDER [None]
  - MUCOSAL DRYNESS [None]
  - SLEEP APNOEA SYNDROME [None]
  - SLEEP DISORDER [None]
  - URINARY INCONTINENCE [None]
  - WEIGHT DECREASED [None]
